FAERS Safety Report 7247092-2 (Version None)
Quarter: 2011Q1

REPORT INFORMATION
  Report Type: 
  Country: None (occurrence: None)
  Receive Date: 20110127
  Receipt Date: 20100406
  Transmission Date: 20110831
  Serious: No
  Sender: FDA-Public Use
  Company Number: US-BAUSCH-2010BL001876

PATIENT
  Age: 71 Year
  Sex: Female

DRUGS (2)
  1. ATENOLOL [Concomitant]
     Indication: PANIC ATTACK
     Dates: start: 19850101
  2. ALAWAY [Suspect]
     Indication: HYPERSENSITIVITY
     Route: 047
     Dates: start: 20100405, end: 20100405

REACTIONS (3)
  - EYE IRRITATION [None]
  - SKIN BURNING SENSATION [None]
  - ERYTHEMA OF EYELID [None]
